FAERS Safety Report 18687043 (Version 1)
Quarter: 2020Q4

REPORT INFORMATION
  Report Type: Other
  Country: DE (occurrence: DE)
  Receive Date: 20201231
  Receipt Date: 20201231
  Transmission Date: 20210114
  Serious: No
  Sender: FDA-Public Use
  Company Number: DE-LUPIN PHARMACEUTICALS INC.-2020-08329

PATIENT
  Sex: Male

DRUGS (1)
  1. LAMOTRIGINE. [Suspect]
     Active Substance: LAMOTRIGINE
     Indication: EPILEPSY
     Dosage: UNK
     Route: 048
     Dates: start: 20180901, end: 20190901

REACTIONS (7)
  - Social avoidant behaviour [Recovered/Resolved]
  - Fatigue [Recovered/Resolved]
  - Disturbance in attention [Recovered/Resolved]
  - Apathy [Recovered/Resolved]
  - Depressed mood [Recovered/Resolved]
  - Abnormal behaviour [Recovered/Resolved]
  - Somnolence [Recovered/Resolved]

NARRATIVE: CASE EVENT DATE: 2018
